FAERS Safety Report 7024917-7 (Version None)
Quarter: 2010Q4

REPORT INFORMATION
  Report Type: 
  Country: None (occurrence: None)
  Receive Date: 20101001
  Receipt Date: 20100920
  Transmission Date: 20110411
  Serious: Yes (Other)
  Sender: FDA-Public Use
  Company Number: US-PFIZER INC-2010119956

PATIENT
  Sex: Female
  Weight: 82.993 kg

DRUGS (6)
  1. NEURONTIN [Suspect]
     Dosage: UNK
  2. LYRICA [Suspect]
     Indication: BACK PAIN
     Dosage: UNK
  3. LYRICA [Suspect]
     Indication: SPINAL COLUMN STENOSIS
  4. LYRICA [Suspect]
     Indication: NEUROPATHY PERIPHERAL
  5. VALSARTAN [Concomitant]
     Dosage: UNK
  6. TEGRETOL [Concomitant]
     Dosage: UNK

REACTIONS (8)
  - BACK PAIN [None]
  - DRUG HYPERSENSITIVITY [None]
  - FEELING ABNORMAL [None]
  - MALAISE [None]
  - NEUROPATHY PERIPHERAL [None]
  - PLATELET COUNT DECREASED [None]
  - SOMNOLENCE [None]
  - SPINAL COLUMN STENOSIS [None]
